FAERS Safety Report 25741056 (Version 1)
Quarter: 2025Q3

REPORT INFORMATION
  Report Type: Spontaneous
  Country: US (occurrence: US)
  Receive Date: 20250829
  Receipt Date: 20250829
  Transmission Date: 20251021
  Serious: Yes (Hospitalization)
  Sender: AMGEN
  Company Number: US-AMGEN-USASP2025166541

PATIENT
  Age: 55 Year
  Sex: Female

DRUGS (7)
  1. PREDNISONE [Suspect]
     Active Substance: PREDNISONE
     Indication: Deafness neurosensory
     Route: 065
  2. ALBUTEROL [Concomitant]
     Active Substance: ALBUTEROL
  3. MECLIZINE [Concomitant]
     Active Substance: MECLIZINE HYDROCHLORIDE
  4. DIAZEPAM [Concomitant]
     Active Substance: DIAZEPAM
     Indication: Viral labyrinthitis
  5. ONDANSETRON [Concomitant]
     Active Substance: ONDANSETRON
     Indication: Viral labyrinthitis
  6. AMOXICILLIN [Concomitant]
     Active Substance: AMOXICILLIN
     Indication: Deafness bilateral
  7. VALACYCLOVIR [Concomitant]
     Active Substance: VALACYCLOVIR HYDROCHLORIDE
     Indication: Deafness bilateral

REACTIONS (6)
  - Encephalitis viral [Unknown]
  - Gene mutation [Unknown]
  - Drug ineffective for unapproved indication [Unknown]
  - Diffusion-weighted brain MRI abnormal [Unknown]
  - Cognitive disorder [Recovering/Resolving]
  - Off label use [Unknown]
